FAERS Safety Report 9825800 (Version 1)
Quarter: 2014Q1

REPORT INFORMATION
  Report Type: Spontaneous
  Country: BR (occurrence: BR)
  Receive Date: 20140117
  Receipt Date: 20140117
  Transmission Date: 20141002
  Serious: Yes (Other)
  Sender: FDA-Public Use
  Company Number: BR-BAYER-2014-008248

PATIENT
  Age: 90 Year
  Sex: Female

DRUGS (3)
  1. CIPRO [Suspect]
     Dosage: 200 MG, UNK
     Route: 042
     Dates: start: 20131219, end: 20131222
  2. AMIODARONE [Concomitant]
  3. ATORVASTATIN CALCIUM [Concomitant]

REACTIONS (1)
  - Myopathy [Recovering/Resolving]
